FAERS Safety Report 18681261 (Version 2)
Quarter: 2021Q1

REPORT INFORMATION
  Report Type: Spontaneous
  Country: US (occurrence: US)
  Receive Date: 20201229
  Receipt Date: 20210226
  Transmission Date: 20210419
  Serious: No
  Sender: FDA-Public Use
  Company Number: US-THERATECHNOLOGIES EUROPE LIMITED-2020-THE-IBA-000332

PATIENT
  Sex: Male

DRUGS (1)
  1. TROGARZO [Suspect]
     Active Substance: IBALIZUMAB-UIYK
     Indication: PRODUCT USED FOR UNKNOWN INDICATION
     Route: 042

REACTIONS (1)
  - Blood creatine increased [Recovered/Resolved]
